FAERS Safety Report 19005326 (Version 1)
Quarter: 2021Q1

REPORT INFORMATION
  Report Type: Spontaneous
  Country: US (occurrence: US)
  Receive Date: 20210312
  Receipt Date: 20210312
  Transmission Date: 20210420
  Serious: No
  Sender: FDA-Public Use
  Company Number: US-AMGEN-USASP2021028222

PATIENT

DRUGS (1)
  1. INFLIXIMAB?AXXQ. [Suspect]
     Active Substance: INFLIXIMAB-AXXQ
     Indication: EXPOSURE DURING PREGNANCY
     Dosage: UNK
     Route: 064

REACTIONS (3)
  - Foetal exposure during pregnancy [Unknown]
  - Thrombocytosis [Unknown]
  - Lymphopenia [Unknown]
